FAERS Safety Report 25148858 (Version 1)
Quarter: 2025Q2

REPORT INFORMATION
  Report Type: Spontaneous
  Country: US (occurrence: US)
  Receive Date: 20250402
  Receipt Date: 20250402
  Transmission Date: 20250717
  Serious: Yes (Death, Other)
  Sender: STRIDES
  Company Number: US-STRIDES ARCOLAB LIMITED-2025SP004097

PATIENT
  Age: 20 Year
  Sex: Female

DRUGS (11)
  1. AMLODIPINE [Suspect]
     Active Substance: AMLODIPINE BESYLATE
     Indication: Product used for unknown indication
     Route: 048
  2. NOREPINEPHRINE [Suspect]
     Active Substance: NOREPINEPHRINE
     Indication: Product used for unknown indication
     Route: 065
  3. NOREPINEPHRINE [Suspect]
     Active Substance: NOREPINEPHRINE
     Indication: Cardiac failure high output
     Route: 065
  4. VASOPRESSIN [Suspect]
     Active Substance: VASOPRESSIN
     Indication: Cardiac failure high output
     Route: 065
  5. EPINEPHRINE [Suspect]
     Active Substance: EPINEPHRINE
     Indication: Cardiac failure high output
     Route: 065
  6. PHENYLEPHRINE [Suspect]
     Active Substance: PHENYLEPHRINE
     Indication: Cardiac failure high output
     Route: 065
  7. METHYLENE BLUE [Suspect]
     Active Substance: METHYLENE BLUE
     Indication: Vasoplegia syndrome
     Route: 065
  8. HYDROXOCOBALAMIN [Suspect]
     Active Substance: HYDROXOCOBALAMIN
     Indication: Vasoplegia syndrome
     Route: 065
  9. GLUCAGON [Concomitant]
     Active Substance: GLUCAGON
     Indication: Product used for unknown indication
     Route: 065
  10. CALCIUM [Concomitant]
     Active Substance: CALCIUM
     Indication: Product used for unknown indication
     Route: 065
  11. INSULIN NOS [Concomitant]
     Active Substance: INSULIN NOS
     Indication: Product used for unknown indication
     Route: 065

REACTIONS (12)
  - Cardiac arrest [Fatal]
  - Toxicity to various agents [Fatal]
  - Overdose [Fatal]
  - Vasoplegia syndrome [Unknown]
  - Multiple organ dysfunction syndrome [Unknown]
  - Renal failure [Unknown]
  - Cardiac failure high output [Unknown]
  - Pulmonary oedema [Unknown]
  - Hypoxia [Unknown]
  - Generalised oedema [Unknown]
  - Somnolence [Unknown]
  - Hypotension [Unknown]
